FAERS Safety Report 22274473 (Version 1)
Quarter: 2023Q2

REPORT INFORMATION
  Report Type: Spontaneous
  Country: US (occurrence: None)
  Receive Date: 20230501
  Receipt Date: 20230501
  Transmission Date: 20230722
  Serious: Yes (Hospitalization)
  Sender: FDA-Public Use
  Company Number: None

PATIENT
  Age: 77 Year
  Sex: Male
  Weight: 81.19 kg

DRUGS (24)
  1. LENALIDOMIDE [Suspect]
     Active Substance: LENALIDOMIDE
     Indication: Plasma cell myeloma
     Dosage: FREQUENCY : DAILY;?
     Route: 048
     Dates: start: 202304, end: 20230424
  2. ASPRIN [Concomitant]
  3. AZATHIOPRINE [Concomitant]
  4. CLOPIDOGREL [Concomitant]
     Active Substance: CLOPIDOGREL BISULFATE
  5. ERGOCALCIFEROL [Concomitant]
  6. FERROUS SULFATE [Concomitant]
  7. FLUOXETINE [Concomitant]
     Active Substance: FLUOXETINE HYDROCHLORIDE
  8. FUROSEMIDE [Concomitant]
     Active Substance: FUROSEMIDE
  9. GABAPENTIN [Concomitant]
     Active Substance: GABAPENTIN
  10. GLIMEPIRIDE [Concomitant]
     Active Substance: GLIMEPIRIDE
  11. HYDROCHLOROTHIAZIDE [Concomitant]
     Active Substance: HYDROCHLOROTHIAZIDE
  12. IBANDRONATE [Concomitant]
  13. LISINOPRIL [Concomitant]
     Active Substance: LISINOPRIL
  14. LOMOTIL [Concomitant]
     Active Substance: ATROPINE SULFATE\DIPHENOXYLATE HYDROCHLORIDE
  15. METHOCARBAMOL [Concomitant]
     Active Substance: METHOCARBAMOL
  16. OMEGA 3 [Concomitant]
  17. PEPCID [Concomitant]
  18. PROLIA [Concomitant]
  19. TAMSULOSIN [Concomitant]
  20. TRAMDOL [Concomitant]
  21. VITAMIN B12 [Concomitant]
     Active Substance: CYANOCOBALAMIN
  22. VITAMIN C [Concomitant]
  23. ZYRTEC [Concomitant]
  24. REVLIMID [Concomitant]

REACTIONS (2)
  - Respiratory distress [None]
  - Therapy interrupted [None]

NARRATIVE: CASE EVENT DATE: 20230424
